FAERS Safety Report 24744521 (Version 1)
Quarter: 2024Q4

REPORT INFORMATION
  Report Type: Spontaneous
  Country: CA (occurrence: CA)
  Receive Date: 20241217
  Receipt Date: 20241217
  Transmission Date: 20250114
  Serious: Yes (Death, Life-Threatening, Other)
  Sender: AMGEN
  Company Number: CA-AMGEN-CANSP2024244182

PATIENT

DRUGS (3)
  1. FILGRASTIM [Suspect]
     Active Substance: FILGRASTIM
     Indication: Acute myeloid leukaemia
     Dosage: UNK (THERAPY FROM 2004-2013 WITH FOLLOW-UP UNTIL JUNE 2014), FIRST LINE THERAPY
     Route: 065
  2. FLUDARABINE [Suspect]
     Active Substance: FLUDARABINE PHOSPHATE
     Indication: Acute myeloid leukaemia
     Dosage: UNK (THERAPY FROM 2004-2013 WITH FOLLOW-UP UNTIL JUNE 2014), FIRST LINE THERAPY
     Route: 065
  3. CYTARABINE [Suspect]
     Active Substance: CYTARABINE
     Indication: Acute myeloid leukaemia
     Dosage: UNK (THERAPY FROM 2004-2013 WITH FOLLOW-UP UNTIL JUNE 2014),FIRST LINE THERAPY
     Route: 065

REACTIONS (4)
  - Death [Fatal]
  - Intensive care [Unknown]
  - Febrile neutropenia [Unknown]
  - Acute myeloid leukaemia recurrent [Unknown]
